FAERS Safety Report 12214212 (Version 2)
Quarter: 2016Q3

REPORT INFORMATION
  Report Type: Spontaneous
  Country: GB (occurrence: GB)
  Receive Date: 20160328
  Receipt Date: 20160923
  Transmission Date: 20161109
  Serious: Yes (Other)
  Sender: FDA-Public Use
  Company Number: GB-JNJFOC-20160320726

PATIENT
  Age: 50 Year
  Sex: Female

DRUGS (6)
  1. AMLODIPINE [Concomitant]
     Active Substance: AMLODIPINE BESYLATE
     Dosage: DOSE: 5 MG AND 10 MG
     Route: 065
  2. CALCIUM W/COLECALCIFEROL [Concomitant]
     Active Substance: CALCIUM\CHOLECALCIFEROL
     Dosage: DOSE: 1 (UNITS UNSPECIFIED); 400 UNIT/1.5 G
     Route: 065
  3. HALDOL [Suspect]
     Active Substance: HALOPERIDOL
     Indication: BIPOLAR DISORDER
     Route: 030
     Dates: start: 20110118
  4. ZOPICLONE [Concomitant]
     Active Substance: ZOPICLONE
     Dosage: DOSE: 7.5 (UNITS UNSPECIFIED); AT NIGHT
     Route: 065
  5. HALDOL [Suspect]
     Active Substance: HALOPERIDOL
     Indication: BIPOLAR DISORDER
     Route: 030
     Dates: start: 20110118
  6. CLOPIDOGREL [Concomitant]
     Active Substance: CLOPIDOGREL BISULFATE
     Dosage: DOSE: 75 (UNITS UNSPECIFIED)
     Route: 065

REACTIONS (1)
  - Oestrogen receptor positive breast cancer [Recovered/Resolved]

NARRATIVE: CASE EVENT DATE: 20151124
